FAERS Safety Report 19979672 (Version 1)
Quarter: 2021Q4

REPORT INFORMATION
  Report Type: Spontaneous
  Country: CA (occurrence: CA)
  Receive Date: 20211020
  Receipt Date: 20211020
  Transmission Date: 20220303
  Serious: Yes (Hospitalization)
  Sender: FDA-Public Use
  Company Number: CA-ABBVIE-21K-028-4126533-00

PATIENT
  Sex: Male
  Weight: 109 kg

DRUGS (1)
  1. VALPROIC ACID [Suspect]
     Active Substance: VALPROIC ACID
     Indication: Bipolar disorder
     Dosage: 1 DF , BID
     Route: 048
     Dates: start: 201808

REACTIONS (7)
  - Swelling [Recovering/Resolving]
  - Pyrexia [Recovering/Resolving]
  - Dyskinesia [Recovering/Resolving]
  - Arthropathy [Not Recovered/Not Resolved]
  - Off label use [Recovered/Resolved]
  - Weight decreased [Recovering/Resolving]
  - Seizure [Recovering/Resolving]
